FAERS Safety Report 6121010-2 (Version None)
Quarter: 2009Q1

REPORT INFORMATION
  Report Type: 
  Country: None (occurrence: None)
  Receive Date: 20090317
  Receipt Date: 20090310
  Transmission Date: 20090719
  Serious: Yes (Hospitalization)
  Sender: FDA-Public Use
  Company Number: PHHY2009IN08616

PATIENT
  Age: 25 Year
  Sex: Female

DRUGS (2)
  1. DICLOFENAC [Suspect]
  2. AMLODIPINE [Concomitant]
     Dosage: 100MG

REACTIONS (11)
  - BLOOD PRESSURE DECREASED [None]
  - DYSPNOEA [None]
  - EPIGASTRIC DISCOMFORT [None]
  - GASTRIC LAVAGE [None]
  - GENERAL PHYSICAL HEALTH DETERIORATION [None]
  - OVERDOSE [None]
  - PALLOR [None]
  - PERIPHERAL COLDNESS [None]
  - PULMONARY OEDEMA [None]
  - SOMNOLENCE [None]
  - VOMITING [None]
